FAERS Safety Report 9885498 (Version 4)
Quarter: 2014Q2

REPORT INFORMATION
  Report Type: Spontaneous
  Country: US (occurrence: US)
  Receive Date: 20140210
  Receipt Date: 20140512
  Transmission Date: 20141212
  Serious: Yes (Hospitalization, Other)
  Sender: FDA-Public Use
  Company Number: US-PFIZER INC-2014035738

PATIENT
  Age: 43 Year
  Sex: Female
  Weight: 81.63 kg

DRUGS (55)
  1. NEURONTIN [Suspect]
     Indication: ANXIETY
     Dosage: 300 MG, 3X/DAY
     Route: 048
     Dates: start: 201312
  2. NEURONTIN [Suspect]
     Dosage: 900 MG, UNK
  3. HALDOL [Concomitant]
     Indication: BIPOLAR DISORDER
     Dosage: 2 MG, DAILY
  4. HALDOL [Concomitant]
     Dosage: 4 MG, DAILY
  5. AMBIEN [Concomitant]
     Indication: INSOMNIA
     Dosage: 10 MG, DAILY (TAKE ONE TABLET BY MOUTH EVERY DAY AT BEDTIME)
     Route: 048
  6. SONATA [Concomitant]
     Indication: INSOMNIA
     Dosage: 10 MG, DAILY (TAKE ONE CAPSULE BY MOUTH EVERY DAY AT BEDTIME)
     Route: 048
  7. LAMICTAL [Concomitant]
     Indication: LENNOX-GASTAUT SYNDROME
     Dosage: 100 MG, UNK
     Route: 048
  8. LAMICTAL [Concomitant]
     Dosage: 25 MG, UNK
     Route: 048
  9. LAMICTAL [Concomitant]
     Dosage: 200 MG, 1X/DAY
     Route: 048
  10. FLURAZEPAM [Concomitant]
     Dosage: 15 MG, 1X/DAY
     Route: 048
  11. FLURAZEPAM [Concomitant]
     Dosage: TWO CAPSULE EVERY DAY ONE HS REPET IN 1/2 HR PRN ONE TIME
  12. VALIUM [Concomitant]
     Dosage: 10 MG, 1X/DAY (TAKE ONE TABLET EVERY NIGHT AT BEDTIME)
     Route: 048
  13. VALIUM [Concomitant]
     Dosage: 5 MG, 1X/DAY
  14. LITHIUM CARBONATE [Concomitant]
     Dosage: 300 MG, 3X/DAY
     Route: 048
  15. LITHIUM CARBONATE [Concomitant]
     Dosage: 150 MG, 4X/DAY
     Route: 048
  16. LAMOTRIGINE [Concomitant]
     Dosage: 200 MG, 1X/DAY
     Route: 048
  17. LAMOTRIGINE [Concomitant]
     Dosage: 25 MG, UNK (TAKE TABLET AS DIRECTED)
     Route: 048
  18. LAMOTRIGINE [Concomitant]
     Dosage: 200 MG, 2X/DAY
     Route: 048
  19. BUPROPION HCL [Concomitant]
     Dosage: 75 MG, 1X/DAY(TAKE ONE TABLET BY MOUTH EVERY DAY TAKE 1/ 2 INITIALLY UNTIL WE DISCUSS REACTION)
     Route: 048
  20. FLUOXETINE [Concomitant]
     Dosage: 30 MG, 1X/DAY
     Route: 048
  21. FLUOXETINE [Concomitant]
     Dosage: 10 MG, 1X/DAY
  22. FLUOXETINE [Concomitant]
     Dosage: 20 MG, 1X/DAY
  23. TRAZODONE [Concomitant]
     Dosage: 50 MG, 1X/DAY
     Route: 048
  24. PROZAC [Concomitant]
     Dosage: 20 MG, 1X/DAY
     Route: 048
  25. PROZAC [Concomitant]
     Dosage: 40 MG, 1X/DAY
     Route: 048
  26. PROZAC [Concomitant]
     Dosage: 10 MG, 3X/DAY
     Route: 048
  27. RISPERDAL [Concomitant]
     Dosage: 2 MG, 2X/DAY
  28. RISPERDAL [Concomitant]
     Dosage: 2 MG, 1X/DAY
  29. FLUPHENAZINE HCL [Concomitant]
     Dosage: 1 MG, 2X/DAY
     Route: 048
  30. LEXAPRO [Concomitant]
     Dosage: 10 MG, 2X/DAY
     Route: 048
  31. LEXAPRO [Concomitant]
     Dosage: 0.5 DF, 1X/DAY
  32. LEXAPRO [Concomitant]
     Dosage: 1 DF, 1X/DAY
  33. LEXAPRO [Concomitant]
     Dosage: 2 DF, 1X/DAY
  34. LEXAPRO [Concomitant]
     Dosage: 20 MG, 1X/DAY
     Route: 048
  35. VIIBRYD [Concomitant]
     Dosage: 40 MG, 1X/DAY (TAKE ONE TABLET EVERY DAY WITH FOOD)
     Route: 048
  36. CYMBALTA [Concomitant]
     Dosage: 60 MG, 1X/DAY
     Route: 048
  37. CYMBALTA [Concomitant]
     Dosage: 20 MG, 1X/DAY
     Route: 048
  38. HALOPERIDOL [Concomitant]
     Dosage: 1 MG, 1X/DAY (TAKE ONE TABLET BY MOUTH EVERY DAY WITH FOOD)
     Route: 048
  39. HALOPERIDOL [Concomitant]
     Dosage: 2 MG, 2X/DAY
     Route: 048
  40. VENLAFAXINE [Concomitant]
     Dosage: 1 DF, 1X/DAY
  41. VENLAFAXINE [Concomitant]
     Dosage: 25 MG, 2X/DAY
  42. ABILIFY [Concomitant]
     Dosage: 2 MG, 1X/DAY
     Route: 048
  43. AMPHETAMINE SALT COMBO [Concomitant]
     Dosage: 15 MG, 1X/DAY (TAKE ONE TABLET EVERY DAY BEFORE BREAKFAST)
     Route: 048
  44. KLONOPIN [Concomitant]
     Dosage: 0.5 MG, UNK
     Route: 048
  45. KLONOPIN [Concomitant]
     Dosage: 2 MG, 2X/DAY
     Route: 048
  46. KLONOPIN [Concomitant]
     Dosage: 1 MG, UNK
     Route: 048
  47. LUNESTA [Concomitant]
     Dosage: 3 MG, 1X/DAY
     Route: 048
  48. ATIVAN [Concomitant]
     Dosage: 1 MG, 2X/DAY
     Route: 048
  49. DALMANE [Concomitant]
     Dosage: 30 MG, 1X/DAY
     Route: 048
  50. RESTORIL [Concomitant]
     Dosage: 15 MG, 1X/DAY
     Route: 048
  51. WELLBUTRIN [Concomitant]
     Dosage: 75 MG, 1X/DAY
     Route: 048
  52. WELLBUTRIN [Concomitant]
     Dosage: 0.5 DF, UNK
  53. WELLBUTRIN [Concomitant]
     Dosage: 1 DF, UNK
  54. SEROQUEL [Concomitant]
     Dosage: 200 MG, 1X/DAY
     Route: 048
  55. DEPAKOTE [Concomitant]
     Dosage: 500 MG, 2X/DAY
     Route: 048

REACTIONS (10)
  - Off label use [Unknown]
  - Headache [Unknown]
  - Poisoning [Recovered/Resolved]
  - Musculoskeletal stiffness [Not Recovered/Not Resolved]
  - Drooling [Not Recovered/Not Resolved]
  - Feeling abnormal [Not Recovered/Not Resolved]
  - Dysarthria [Not Recovered/Not Resolved]
  - Confusional state [Unknown]
  - Ataxia [Recovered/Resolved]
  - Feeling drunk [Recovered/Resolved]
